FAERS Safety Report 6862432-1 (Version None)
Quarter: 2010Q3

REPORT INFORMATION
  Report Type: 
  Country: None (occurrence: None)
  Receive Date: 20100721
  Receipt Date: 20100708
  Transmission Date: 20110219
  Serious: Yes (Hospitalization, Other)
  Sender: FDA-Public Use
  Company Number: US-ELI_LILLY_AND_COMPANY-US201007002581

PATIENT
  Sex: Female

DRUGS (13)
  1. FORTEO [Suspect]
     Dosage: 20 UG, DAILY (1/D)
     Dates: start: 20100413, end: 20100422
  2. FORTEO [Suspect]
     Dosage: 20 UG, DAILY (1/D)
     Dates: start: 20100615
  3. PHENERGAN [Concomitant]
  4. ZOFRAN [Concomitant]
  5. BENTYL [Concomitant]
  6. PREVACID [Concomitant]
  7. REGLAN [Concomitant]
  8. PROTONIX [Concomitant]
  9. MULTI-VITAMINS [Concomitant]
  10. CALCIUM [Concomitant]
  11. VITAMIN D [Concomitant]
  12. SYNTHROID [Concomitant]
  13. ZOCOR [Concomitant]

REACTIONS (11)
  - ABDOMINAL DISCOMFORT [None]
  - ADRENAL INSUFFICIENCY [None]
  - ARTHROPATHY [None]
  - DEHYDRATION [None]
  - DRUG DOSE OMISSION [None]
  - EYE DISORDER [None]
  - FATIGUE [None]
  - KNEE ARTHROPLASTY [None]
  - MALAISE [None]
  - NAUSEA [None]
  - RETCHING [None]
